FAERS Safety Report 7062409-X (Version None)
Quarter: 2010Q4

REPORT INFORMATION
  Report Type: 
  Country: None (occurrence: None)
  Receive Date: 20101026
  Receipt Date: 20090521
  Transmission Date: 20110411
  Serious: Yes (Other)
  Sender: FDA-Public Use
  Company Number: US-PFIZER INC-2009194153

PATIENT
  Sex: Male
  Weight: 81.633 kg

DRUGS (2)
  1. LIPITOR [Suspect]
     Indication: BLOOD CHOLESTEROL
     Dosage: 10 MG, 1X/DAY
     Route: 048
     Dates: start: 20080701, end: 20090328
  2. TESTOSTERONE [Concomitant]
     Dosage: UNK

REACTIONS (5)
  - ANXIETY [None]
  - CHEST PAIN [None]
  - HYPERTENSION [None]
  - MUSCLE SPASMS [None]
  - WRONG TECHNIQUE IN DRUG USAGE PROCESS [None]
